FAERS Safety Report 9123078 (Version 2)
Quarter: 2013Q2

REPORT INFORMATION
  Report Type: Spontaneous
  Country: VE (occurrence: VE)
  Receive Date: 20130227
  Receipt Date: 20130517
  Transmission Date: 20140414
  Serious: No
  Sender: FDA-Public Use
  Company Number: VE-ELI_LILLY_AND_COMPANY-VE201211008667

PATIENT
  Age: 27 Year
  Sex: Female

DRUGS (5)
  1. HUMALOG 25% LISPRO, 75% NPL [Suspect]
     Indication: GESTATIONAL DIABETES
     Dosage: 10 U, EACH MORNING
     Route: 058
     Dates: start: 20121127, end: 20121225
  2. HUMALOG 25% LISPRO, 75% NPL [Suspect]
     Dosage: 10 U, EACH EVENING
     Route: 058
     Dates: start: 20121127
  3. AMLODIPINE [Concomitant]
  4. VITAMINS [Concomitant]
  5. ALDOMET [Concomitant]
     Indication: HYPERTENSION
     Route: 048

REACTIONS (1)
  - Exposure during pregnancy [Recovered/Resolved]
